FAERS Safety Report 23481223 (Version 3)
Quarter: 2024Q1

REPORT INFORMATION
  Report Type: Spontaneous
  Country: US (occurrence: US)
  Receive Date: 20240205
  Receipt Date: 20240307
  Transmission Date: 20240409
  Serious: No
  Sender: FDA-Public Use
  Company Number: US-PFIZER INC-202400016328

PATIENT
  Age: 17 Year
  Sex: Male
  Weight: 47.166 kg

DRUGS (1)
  1. GENOTROPIN [Suspect]
     Active Substance: SOMATROPIN
     Dosage: 2.6 MG, 6 DAYS/WEEK
     Dates: start: 202103

REACTIONS (2)
  - Poor quality device used [Unknown]
  - Device leakage [Unknown]
